FAERS Safety Report 19889678 (Version 1)
Quarter: 2021Q3

REPORT INFORMATION
  Report Type: Spontaneous
  Country: US (occurrence: US)
  Receive Date: 20210928
  Receipt Date: 20210928
  Transmission Date: 20211014
  Serious: No
  Sender: FDA-Public Use
  Company Number: None

PATIENT
  Age: 74 Year
  Sex: Male
  Weight: 82 kg

DRUGS (12)
  1. REMDESIVIR FOR INJECTION [Suspect]
     Active Substance: REMDESIVIR
     Indication: COVID-19
     Dosage: ?          OTHER FREQUENCY:ONCE;?
     Route: 042
     Dates: start: 20210927, end: 20210928
  2. VITAMIN D 50,000 UNIT WEEKLY [Concomitant]
     Dates: start: 20210927
  3. ONDANSETRON 4MG IV [Concomitant]
     Active Substance: ONDANSETRON
     Dates: start: 20210926, end: 20210926
  4. ACETYLCYSTEINE. [Concomitant]
     Active Substance: ACETYLCYSTEINE
     Dates: start: 20210927
  5. FERROUS SULFATE 325 [Concomitant]
     Dates: start: 20210927
  6. ENOXAPARIN 40MG [Concomitant]
     Active Substance: ENOXAPARIN
     Dates: start: 20210927
  7. FLUTICASONE 110MCG/ACT INHALER [Concomitant]
     Dates: start: 20210927
  8. DEXAMETHASONE 6MG [Concomitant]
     Dates: start: 20210927
  9. ZINCATE 220MG [Concomitant]
     Dates: start: 20210927
  10. ASPIRIN EC 81MG [Concomitant]
     Dates: start: 20210927
  11. BUDESONIDE EC 3MG [Concomitant]
     Active Substance: BUDESONIDE
     Dates: start: 20210927
  12. FAMOTIDINE 20MG [Concomitant]
     Active Substance: FAMOTIDINE
     Dates: start: 20210927

REACTIONS (1)
  - Bradycardia [None]

NARRATIVE: CASE EVENT DATE: 20210927
